FAERS Safety Report 5460820-1 (Version None)
Quarter: 2007Q3

REPORT INFORMATION
  Report Type: 
  Country: None (occurrence: None)
  Receive Date: 20070919
  Receipt Date: 20070911
  Transmission Date: 20080115
  Serious: No
  Sender: FDA-Public Use
  Company Number: US-BOEHRINGER INGELHEIM PHARMACEUTICALS, INC.-2007-BP-19942BP

PATIENT
  Sex: Female

DRUGS (10)
  1. FLOMAX [Suspect]
     Indication: BLADDER PAIN
     Route: 048
     Dates: start: 20070701, end: 20070701
  2. FLOMAX [Suspect]
     Indication: INFECTION
  3. RANITIDINE [Concomitant]
  4. ENALAPRIL MALEATE [Concomitant]
     Indication: HYPERTENSION
  5. ASPIRIN [Concomitant]
  6. PROCARDIA XL [Concomitant]
  7. EVISTA [Concomitant]
  8. LESCOL XL [Concomitant]
  9. CALCIUM [Concomitant]
  10. VITAMINS [Concomitant]

REACTIONS (1)
  - DIZZINESS [None]
